FAERS Safety Report 5132948-7 (Version None)
Quarter: 2006Q4

REPORT INFORMATION
  Report Type: 
  Country: None (occurrence: None)
  Receive Date: 20061019
  Receipt Date: 20061019
  Transmission Date: 20070319
  Serious: Yes (Hospitalization)
  Sender: FDA-Public Use
  Company Number: None

PATIENT
  Sex: Male
  Weight: 73.5 kg

DRUGS (11)
  1. IRINOTECAN HCL [Suspect]
     Indication: GLIOBLASTOMA MULTIFORME
     Dosage: 644 MG IV (DAY 1, 8, 22 AND 29)
     Route: 042
     Dates: start: 20060908
  2. IRINOTECAN HCL [Suspect]
     Indication: GLIOBLASTOMA MULTIFORME
     Dosage: 644 MG IV (DAY 1, 8, 22 AND 29)
     Route: 042
     Dates: start: 20060915
  3. IRINOTECAN HCL [Suspect]
     Indication: GLIOBLASTOMA MULTIFORME
     Dosage: 644 MG IV (DAY 1, 8, 22 AND 29)
     Route: 042
     Dates: start: 20060929
  4. IRINOTECAN HCL [Suspect]
     Indication: GLIOBLASTOMA MULTIFORME
     Dosage: 644 MG IV (DAY 1, 8, 22 AND 29)
     Route: 042
     Dates: start: 20061006
  5. BEVACIZUMAB [Suspect]
     Indication: GLIOBLASTOMA MULTIFORME
     Dosage: 1102MG IV (DAY 1 AND 22)
     Route: 042
     Dates: start: 20060908
  6. BEVACIZUMAB [Suspect]
     Indication: GLIOBLASTOMA MULTIFORME
     Dosage: 1102MG IV (DAY 1 AND 22)
     Route: 042
     Dates: start: 20060929
  7. DILANTIN [Concomitant]
  8. PROTONIX [Concomitant]
  9. GLUCOPHAGE [Concomitant]
  10. AVANDIA [Concomitant]
  11. ALTACE [Concomitant]

REACTIONS (3)
  - ANTICONVULSANT DRUG LEVEL DECREASED [None]
  - CONVULSION [None]
  - HEMIPARESIS [None]
